FAERS Safety Report 8989695 (Version 1)
Quarter: 2012Q4

REPORT INFORMATION
  Report Type: 
  Country: US (occurrence: US)
  Receive Date: 20121227
  Receipt Date: 20121227
  Transmission Date: 20130627
  Serious: No
  Sender: FDA-Public Use
  Company Number: US-ASTRAZENECA-2012SE93554

PATIENT
  Age: 84 Year
  Sex: Female

DRUGS (1)
  1. TOPROL XL [Suspect]
     Indication: BLOOD PRESSURE ABNORMAL
     Route: 048
     Dates: start: 201212

REACTIONS (3)
  - Fall [Unknown]
  - Face injury [Unknown]
  - Dizziness [Unknown]
